FAERS Safety Report 11108660 (Version 4)
Quarter: 2015Q3

REPORT INFORMATION
  Report Type: Spontaneous
  Country: TR (occurrence: TR)
  Receive Date: 20150513
  Receipt Date: 20150812
  Transmission Date: 20151125
  Serious: Yes (Life-Threatening, Hospitalization, Disabling, Other)
  Sender: FDA-Public Use
  Company Number: TR-ROCHE-1576788

PATIENT
  Age: 53 Year
  Sex: Female

DRUGS (4)
  1. LANTUS [Concomitant]
     Active Substance: INSULIN GLARGINE
  2. NOVORAPID [Concomitant]
     Active Substance: INSULIN ASPART
     Route: 065
  3. LUCENTIS [Suspect]
     Active Substance: RANIBIZUMAB
     Indication: DIABETIC RETINAL OEDEMA
     Route: 050
     Dates: start: 20150428
  4. ASPIRIN. [Concomitant]
     Active Substance: ASPIRIN

REACTIONS (7)
  - Blindness [Recovered/Resolved]
  - Carotid artery stenosis [Unknown]
  - Subretinal fluid [Unknown]
  - Embolism [Unknown]
  - Ischaemic stroke [Unknown]
  - Lacunar infarction [Unknown]
  - Macular oedema [Unknown]

NARRATIVE: CASE EVENT DATE: 20150428
